FAERS Safety Report 7528352-4 (Version None)
Quarter: 2011Q2

REPORT INFORMATION
  Report Type: 
  Country: None (occurrence: None)
  Receive Date: 20110607
  Receipt Date: 20101105
  Transmission Date: 20111010
  Serious: No
  Sender: FDA-Public Use
  Company Number: US-ASTRAZENECA-2010SE55216

PATIENT
  Sex: Female

DRUGS (1)
  1. PRILOSEC OTC [Suspect]
     Route: 048
     Dates: start: 20101105, end: 20101105

REACTIONS (5)
  - MALAISE [None]
  - ANXIETY [None]
  - PALPITATIONS [None]
  - FEELING ABNORMAL [None]
  - BURNING SENSATION [None]
